FAERS Safety Report 5942105-X (Version None)
Quarter: 2008Q4

REPORT INFORMATION
  Report Type: 
  Country: None (occurrence: None)
  Receive Date: 20081105
  Receipt Date: 20081104
  Transmission Date: 20090506
  Serious: No
  Sender: FDA-Public Use
  Company Number: A0743196A

PATIENT
  Age: 38 Year
  Sex: Female
  Weight: 97.7 kg

DRUGS (1)
  1. ALLI [Suspect]
     Indication: WEIGHT LOSS DIET
     Route: 048
     Dates: start: 20080101

REACTIONS (2)
  - AMENORRHOEA [None]
  - METRORRHAGIA [None]
